FAERS Safety Report 15860880 (Version 2)
Quarter: 2019Q2

REPORT INFORMATION
  Report Type: Spontaneous
  Country: US (occurrence: US)
  Receive Date: 20190124
  Receipt Date: 20190405
  Transmission Date: 20190711
  Serious: No
  Sender: FDA-Public Use
  Company Number: US-BIOGEN-2019BI00685527

PATIENT
  Sex: Female

DRUGS (1)
  1. TYSABRI [Suspect]
     Active Substance: NATALIZUMAB
     Indication: MULTIPLE SCLEROSIS
     Dosage: INFUSED OVER ONE HOUR
     Route: 050

REACTIONS (6)
  - Hemianaesthesia [Unknown]
  - Burning sensation [Unknown]
  - Speech disorder [Unknown]
  - Fatigue [Unknown]
  - Hemiparesis [Unknown]
  - Balance disorder [Unknown]
